FAERS Safety Report 10052751 (Version 1)
Quarter: 2014Q2

REPORT INFORMATION
  Report Type: Spontaneous
  Country: DE (occurrence: DE)
  Receive Date: 20140402
  Receipt Date: 20140402
  Transmission Date: 20141212
  Serious: Yes (Death)
  Sender: FDA-Public Use
  Company Number: DE-BAYER-2014-047086

PATIENT
  Sex: Female

DRUGS (4)
  1. XARELTO [Suspect]
     Indication: ATRIAL FIBRILLATION
     Dosage: 15 MG, UNK
  2. XARELTO [Interacting]
     Indication: CEREBROVASCULAR ACCIDENT PROPHYLAXIS
  3. ASS [Interacting]
  4. CLOPIDOGREL [Interacting]

REACTIONS (2)
  - Haemorrhage [Fatal]
  - Drug interaction [None]
